FAERS Safety Report 13306133 (Version 1)
Quarter: 2017Q1

REPORT INFORMATION
  Report Type: Spontaneous
  Country: US (occurrence: US)
  Receive Date: 20170308
  Receipt Date: 20170308
  Transmission Date: 20170428
  Serious: Yes (Life-Threatening, Other)
  Sender: FDA-Public Use
  Company Number: PHEH2017US006824

PATIENT
  Age: 71 Year
  Sex: Female

DRUGS (1)
  1. RECLAST [Suspect]
     Active Substance: ZOLEDRONIC ACID
     Indication: PRODUCT USED FOR UNKNOWN INDICATION
     Dosage: UNK
     Route: 065
     Dates: start: 20161212

REACTIONS (8)
  - Gait disturbance [Unknown]
  - Urinary retention [Unknown]
  - Gastric disorder [Unknown]
  - Apparent death [Unknown]
  - Abasia [Unknown]
  - Tooth disorder [Unknown]
  - Dizziness [Unknown]
  - Malaise [Unknown]
